FAERS Safety Report 5025462-0 (Version None)
Quarter: 2006Q2

REPORT INFORMATION
  Report Type: 
  Country: None (occurrence: None)
  Receive Date: 20060608
  Receipt Date: 20060522
  Transmission Date: 20061013
  Serious: Yes (Hospitalization, Other)
  Sender: FDA-Public Use
  Company Number: DSA_70906_2006

PATIENT
  Age: 50 Year
  Sex: Female

DRUGS (3)
  1. AZATHIOPRINE [Suspect]
     Dosage: 50 MG QDAY PO
     Route: 048
     Dates: start: 20040201, end: 20040701
  2. AVONEX [Suspect]
     Indication: RELAPSING-REMITTING MULTIPLE SCLEROSIS
     Dosage: DF QWK IM
     Route: 030
     Dates: start: 19970101
  3. DEXAMETHASONE TAB [Concomitant]

REACTIONS (8)
  - DIZZINESS [None]
  - DYSPNOEA [None]
  - EXERCISE TOLERANCE DECREASED [None]
  - FATIGUE [None]
  - GENE MUTATION [None]
  - PANCYTOPENIA [None]
  - SERUM FERRITIN INCREASED [None]
  - VITAMIN B12 DECREASED [None]
